FAERS Safety Report 6102611-4 (Version None)
Quarter: 2009Q1

REPORT INFORMATION
  Report Type: 
  Country: None (occurrence: None)
  Receive Date: 20090304
  Receipt Date: 20081007
  Transmission Date: 20090719
  Serious: No
  Sender: FDA-Public Use
  Company Number: A0750799A

PATIENT
  Age: 59 Year
  Sex: Male

DRUGS (12)
  1. REQUIP [Suspect]
     Indication: RESTLESS LEGS SYNDROME
     Dosage: 1MG PER DAY
     Route: 048
     Dates: start: 20070101, end: 20080929
  2. ROPINIROLE HYDROCHLORIDE [Suspect]
     Indication: RESTLESS LEGS SYNDROME
     Route: 065
  3. TOPROL-XL [Concomitant]
  4. INSPRA [Concomitant]
  5. DIOVAN [Concomitant]
  6. PLAVIX [Concomitant]
  7. ASPIRIN [Concomitant]
  8. SAW PALMETTO [Concomitant]
  9. FISH OIL [Concomitant]
  10. CENTRUM [Concomitant]
  11. ASCORBIC ACID [Concomitant]
  12. TYLENOL [Concomitant]

REACTIONS (7)
  - ANXIETY [None]
  - CONFUSIONAL STATE [None]
  - DRUG INEFFECTIVE [None]
  - HEADACHE [None]
  - SINUSITIS [None]
  - SOMNOLENCE [None]
  - VISUAL IMPAIRMENT [None]
